FAERS Safety Report 5383876-3 (Version None)
Quarter: 2007Q3

REPORT INFORMATION
  Report Type: 
  Country: None (occurrence: None)
  Receive Date: 20070706
  Receipt Date: 20070622
  Transmission Date: 20080115
  Serious: Yes (Death)
  Sender: FDA-Public Use
  Company Number: 130

PATIENT
  Sex: Female

DRUGS (1)
  1. FAZCLO 100 MG ODT   AVANIR PHARMACEUTICALS [Suspect]
     Dosage: 100 MG PO DAILY
     Route: 048
     Dates: start: 20070118, end: 20070618

REACTIONS (1)
  - DEATH [None]
